FAERS Safety Report 4801847-X (Version None)
Quarter: 2005Q4

REPORT INFORMATION
  Report Type: 
  Country: None (occurrence: None)
  Receive Date: 20051011
  Receipt Date: 20050927
  Transmission Date: 20060501
  Serious: Yes (Other)
  Sender: FDA-Public Use
  Company Number: 2005137479

PATIENT
  Sex: Female
  Weight: 58.9676 kg

DRUGS (6)
  1. SUDAFED 12 HOUR [Suspect]
     Indication: HYPERSENSITIVITY
     Dosage: 120 MG TWICE A DAY, ORAL
     Route: 048
     Dates: start: 20010101, end: 20050923
  2. GUAIFENESIN (GUAIFENESIN) [Suspect]
     Indication: HYPERSENSITIVITY
     Dosage: 1200 MG TWICE A DAY, ORAL
     Route: 048
     Dates: start: 20010101
  3. GABAPENTIN [Concomitant]
  4. DIAZEPAM [Concomitant]
  5. DRUG, UNSPECIFIED (DRUG, UNSPECIFIED) [Concomitant]
  6. OXYMETAZOLINE HYDROCHLORIDE (OXYMETAZOLINE HYDROCHLORIDE) [Concomitant]

REACTIONS (10)
  - CEREBROVASCULAR ACCIDENT [None]
  - DEPRESSION [None]
  - DRUG INEFFECTIVE [None]
  - ENTEROCOCCAL INFECTION [None]
  - EYE DISORDER [None]
  - HEADACHE [None]
  - LID LAG [None]
  - URINARY TRACT INFECTION [None]
  - VOMITING [None]
  - WEIGHT DECREASED [None]
